FAERS Safety Report 5454509-2 (Version None)
Quarter: 2007Q3

REPORT INFORMATION
  Report Type: 
  Country: None (occurrence: None)
  Receive Date: 20070917
  Receipt Date: 20060913
  Transmission Date: 20080115
  Serious: Yes (Other)
  Sender: FDA-Public Use
  Company Number: US-ASTRAZENECA-2006UW14548

PATIENT
  Sex: Female
  Weight: 50 kg

DRUGS (3)
  1. SEROQUEL [Suspect]
     Route: 048
  2. VICODIN [Suspect]
  3. XANAX [Suspect]

REACTIONS (1)
  - CONVULSION [None]
